FAERS Safety Report 5344505-8 (Version None)
Quarter: 2007Q2

REPORT INFORMATION
  Report Type: 
  Country: None (occurrence: None)
  Receive Date: 20070604
  Receipt Date: 20070523
  Transmission Date: 20071010
  Serious: Yes (Death)
  Sender: FDA-Public Use
  Company Number: JP-PFIZER INC-2007036487

PATIENT
  Age: 73 Year
  Sex: Male
  Weight: 72.5 kg

DRUGS (2)
  1. ZYVOX [Suspect]
     Indication: STAPHYLOCOCCAL INFECTION
     Dates: start: 20070421, end: 20070426
  2. GABEXATE MESILATE [Suspect]
     Indication: DISSEMINATED INTRAVASCULAR COAGULATION
     Dosage: DAILY DOSE:2000MG
     Dates: start: 20070419, end: 20070425

REACTIONS (3)
  - HEPATIC CIRRHOSIS [None]
  - HEPATIC FAILURE [None]
  - RASH [None]
